FAERS Safety Report 5293724-8 (Version None)
Quarter: 2007Q2

REPORT INFORMATION
  Report Type: 
  Country: None (occurrence: None)
  Receive Date: 20070405
  Receipt Date: 20070321
  Transmission Date: 20071010
  Serious: Yes (Hospitalization)
  Sender: FDA-Public Use
  Company Number: 2007-00939

PATIENT
  Age: 63 Year
  Sex: Male

DRUGS (3)
  1. VELCADE [Suspect]
     Indication: DRUG USE FOR UNKNOWN INDICATION
     Dosage: 1.30 MG/M2
     Dates: start: 20050801, end: 20050901
  2. ENDOXAN [Concomitant]
  3. ALKERAN [Concomitant]

REACTIONS (4)
  - HYPOXIC ENCEPHALOPATHY [None]
  - LUNG DISORDER [None]
  - PYREXIA [None]
  - STEM CELL TRANSPLANT [None]
